FAERS Safety Report 4549150-X (Version None)
Quarter: 2004Q4

REPORT INFORMATION
  Report Type: 
  Country: None (occurrence: None)
  Receive Date: 20041227
  Receipt Date: 20041110
  Transmission Date: 20050328
  Serious: No
  Sender: FDA-Public Use
  Company Number: 04P-163-0280392-00

PATIENT
  Age: 42 Year
  Sex: Female
  Weight: 52.6173 kg

DRUGS (5)
  1. HUMIRA [Suspect]
     Indication: RHEUMATOID ARTHRITIS
     Dosage: 40 MG, 1 IN 2 WK, SUBCUTANEOUS
     Route: 058
     Dates: start: 20040701
  2. METHOTREXATE [Concomitant]
  3. FOLIC ACID [Concomitant]
  4. CALCIUM GLUCONATE [Concomitant]
  5. MULTI-VITAMINS [Concomitant]

REACTIONS (4)
  - ERYTHEMA [None]
  - LYMPHADENOPATHY [None]
  - SWELLING [None]
  - URTICARIA [None]
